FAERS Safety Report 4889979-1 (Version None)
Quarter: 2006Q1

REPORT INFORMATION
  Report Type: 
  Country: None (occurrence: None)
  Receive Date: 20060123
  Receipt Date: 20060123
  Transmission Date: 20060701
  Serious: Yes (Life-Threatening, Hospitalization)
  Sender: FDA-Public Use
  Company Number: None

PATIENT
  Age: 62 Year
  Sex: Female
  Weight: 71 kg

DRUGS (9)
  1. OXALIPLATIN         SANOFI/AVENTIS [Suspect]
     Indication: PANCREATIC CARCINOMA
     Dosage: 70 MG/M2 = 132 MG  EVERY 2 WEEKS  IV DRIP
     Route: 041
     Dates: start: 20041103, end: 20050420
  2. GEMCITABINE [Concomitant]
  3. PALONOSETRON [Concomitant]
  4. DEXAMETHASONE TAB [Concomitant]
  5. PREVACID [Concomitant]
  6. LISONPRIL [Concomitant]
  7. OXYCODONE [Concomitant]
  8. COLACE [Concomitant]
  9. SENNA [Concomitant]

REACTIONS (6)
  - ABSCESS NECK [None]
  - ANAPHYLACTIC REACTION [None]
  - DRUG HYPERSENSITIVITY [None]
  - LARYNGOSPASM [None]
  - PNEUMOTHORAX [None]
  - RESPIRATORY DISORDER [None]
